FAERS Safety Report 6750950-6 (Version None)
Quarter: 2010Q2

REPORT INFORMATION
  Report Type: 
  Country: None (occurrence: None)
  Receive Date: 20100526
  Receipt Date: 20100511
  Transmission Date: 20101027
  Serious: Yes (Hospitalization)
  Sender: FDA-Public Use
  Company Number: B0656398A

PATIENT
  Age: 55 Year
  Sex: Male

DRUGS (6)
  1. ABACAVIR SULFATE [Suspect]
     Indication: HIV INFECTION
  2. LAMIVUDINE [Suspect]
     Indication: HIV INFECTION
  3. EFAVIRENZ [Suspect]
  4. RITONAVIR [Suspect]
  5. LOPINAVIR (FORMULATION UNKNOWN) (LOPINAVIR ) [Suspect]
  6. ZIDOVUDINE [Suspect]
     Indication: HIV INFECTION

REACTIONS (5)
  - AIDS ENCEPHALOPATHY [None]
  - COGNITIVE DISORDER [None]
  - CONFUSIONAL STATE [None]
  - MOBILITY DECREASED [None]
  - PATHOGEN RESISTANCE [None]
